FAERS Safety Report 4470153-8 (Version None)
Quarter: 2004Q3

REPORT INFORMATION
  Report Type: 
  Country: None (occurrence: None)
  Receive Date: 20040910
  Receipt Date: 20040723
  Transmission Date: 20050211
  Serious: No
  Sender: FDA-Public Use
  Company Number: 2004225649US

PATIENT
  Age: 54 Year
  Sex: Female
  Weight: 79.4 kg

DRUGS (12)
  1. BEXTRA [Suspect]
     Indication: INFLAMMATION
     Dosage: 20, ORAL
     Route: 048
     Dates: start: 20040721, end: 20040723
  2. INSULIN [Concomitant]
  3. ENALAPRIL MALEATE [Concomitant]
  4. GEMFIBROZIL [Concomitant]
  5. VERAPAMIL [Concomitant]
  6. COZAAR [Concomitant]
  7. LOVASTATIN [Concomitant]
  8. FUROSEMIDE [Concomitant]
  9. AMITRIPTYLINE HCL [Concomitant]
  10. VITAMIN E [Concomitant]
  11. CALCIUM [Concomitant]
  12. ASPIRIN [Concomitant]

REACTIONS (4)
  - ASTHENIA [None]
  - COLD SWEAT [None]
  - HYPERHIDROSIS [None]
  - NAUSEA [None]
